FAERS Safety Report 13323545 (Version 1)
Quarter: 2017Q1

REPORT INFORMATION
  Report Type: Spontaneous
  Country: US (occurrence: US)
  Receive Date: 20170308
  Receipt Date: 20170308
  Transmission Date: 20170428
  Serious: No
  Sender: FDA-Public Use
  Company Number: US-AMGEN-USASP2016163415

PATIENT
  Age: 54 Year
  Sex: Male

DRUGS (9)
  1. RENVELA [Concomitant]
     Active Substance: SEVELAMER CARBONATE
  2. SENSIPAR [Suspect]
     Active Substance: CINACALCET HYDROCHLORIDE
     Indication: HYPERPARATHYROIDISM SECONDARY
     Dosage: 30 MG, UNK
     Route: 065
  3. SENSIPAR [Suspect]
     Active Substance: CINACALCET HYDROCHLORIDE
     Dosage: 60 MG, UNK
     Route: 065
     Dates: start: 201608
  4. QUESTRAN [Concomitant]
     Active Substance: CHOLESTYRAMINE
  5. CENTRUM [Concomitant]
     Active Substance: VITAMINS
  6. OMEGA-3 FATTY ACIDS [Concomitant]
     Active Substance: OMEGA-3 FATTY ACIDS
  7. SODIUM BICARBONATE. [Concomitant]
     Active Substance: SODIUM BICARBONATE
  8. LOPIDINE [Concomitant]
  9. NOVOLOG [Concomitant]
     Active Substance: INSULIN ASPART

REACTIONS (2)
  - Blood parathyroid hormone abnormal [Unknown]
  - Rash generalised [Not Recovered/Not Resolved]

NARRATIVE: CASE EVENT DATE: 201610
